FAERS Safety Report 4929508-7 (Version None)
Quarter: 2006Q1

REPORT INFORMATION
  Report Type: 
  Country: None (occurrence: None)
  Receive Date: 20060224
  Receipt Date: 20060208
  Transmission Date: 20060701
  Serious: Yes (Other)
  Sender: FDA-Public Use
  Company Number: DSA_27765_2006

PATIENT
  Age: 19 Year
  Sex: Female

DRUGS (3)
  1. TAVOR [Suspect]
     Dosage: 7.5 MG ONCE PO
     Route: 048
     Dates: start: 20060105, end: 20060105
  2. NEUROCIL [Suspect]
     Dosage: 325 MG ONCE PO
     Route: 048
     Dates: start: 20060105, end: 20060105
  3. SEROQUEL [Suspect]
     Dosage: 1000 MG ONCE PO
     Route: 048
     Dates: start: 20060105, end: 20060105

REACTIONS (4)
  - FATIGUE [None]
  - MULTIPLE DRUG OVERDOSE INTENTIONAL [None]
  - SUICIDE ATTEMPT [None]
  - TACHYCARDIA [None]
